FAERS Safety Report 4401159-2 (Version None)
Quarter: 2004Q3

REPORT INFORMATION
  Report Type: 
  Country: None (occurrence: None)
  Receive Date: 20040714
  Receipt Date: 20040624
  Transmission Date: 20050211
  Serious: Yes (Other)
  Sender: FDA-Public Use
  Company Number: USA040671019

PATIENT
  Sex: Female

DRUGS (11)
  1. REGULAR INSULIN, BEEF [Suspect]
  2. LENTE ILETIN (BEEF-PORK) INSULIN ZINC [Suspect]
     Dates: end: 20040624
  3. COUMADIN [Concomitant]
  4. MULTI-VITAMIN [Concomitant]
  5. PROTONIX [Concomitant]
  6. SUCRALFATE [Concomitant]
  7. CEPHALEXIN [Concomitant]
  8. ACETAMINOPHEN W/HYDROCODONE [Concomitant]
  9. TORSEMIDE [Concomitant]
  10. METOCLOPRAMIDE [Concomitant]
  11. RENAGEL [Concomitant]

REACTIONS (12)
  - COUGH [None]
  - DIABETES MELLITUS INADEQUATE CONTROL [None]
  - DIABETIC RETINOPATHY [None]
  - DIALYSIS [None]
  - DYSPEPSIA [None]
  - GASTRIC DISORDER [None]
  - NEUROPATHY [None]
  - PHARMACEUTICAL PRODUCT COMPLAINT [None]
  - RENAL FAILURE [None]
  - SKIN ULCER [None]
  - THROMBOSIS [None]
  - ULCER HAEMORRHAGE [None]
